FAERS Safety Report 4825307-5 (Version None)
Quarter: 2005Q4

REPORT INFORMATION
  Report Type: 
  Country: None (occurrence: None)
  Receive Date: 20051111
  Receipt Date: 20050805
  Transmission Date: 20060501
  Serious: Yes (Hospitalization)
  Sender: FDA-Public Use
  Company Number: JP-BRISTOL-MYERS SQUIBB COMPANY-13065677

PATIENT
  Age: 62 Year
  Sex: Female

DRUGS (4)
  1. MAXIPIME [Suspect]
     Indication: SEPSIS
     Route: 041
     Dates: start: 20050801, end: 20050803
  2. NICARDIPINE HCL [Concomitant]
     Route: 041
     Dates: start: 20050803, end: 20050809
  3. HEPARIN SODIUM [Concomitant]
     Route: 041
     Dates: start: 20050803, end: 20050821
  4. TAZOCIN [Concomitant]
     Route: 041
     Dates: start: 20050804, end: 20050818

REACTIONS (3)
  - CONVULSION [None]
  - DEPRESSED LEVEL OF CONSCIOUSNESS [None]
  - TREMOR [None]
